FAERS Safety Report 4357568-3 (Version None)
Quarter: 2004Q2

REPORT INFORMATION
  Report Type: 
  Country: None (occurrence: None)
  Receive Date: 20040510
  Receipt Date: 20040426
  Transmission Date: 20050107
  Serious: Yes (Hospitalization)
  Sender: FDA-Public Use
  Company Number: JP-JNJFOC-20040201178

PATIENT
  Age: 67 Year
  Sex: Female
  Weight: 51 kg

DRUGS (11)
  1. REMICADE [Suspect]
     Indication: RHEUMATOID ARTHRITIS
     Dosage: 3 MG/KG, 1 IN 1 AS NECESSARY, INTRAVENOUS DRIP
     Route: 041
  2. REMICADE [Suspect]
     Indication: RHEUMATOID ARTHRITIS
     Dosage: 3 MG/KG, 1 IN 1 AS NECESSARY, INTRAVENOUS DRIP
     Route: 041
     Dates: start: 20031008, end: 20031008
  3. REMICADE [Suspect]
     Indication: RHEUMATOID ARTHRITIS
     Dosage: 3 MG/KG, 1 IN 1 AS NECESSARY, INTRAVENOUS DRIP
     Route: 041
     Dates: start: 20031106, end: 20031106
  4. PREDNISOLONE [Concomitant]
  5. RHEUMATREX [Concomitant]
  6. AZULFIDINE EN (SULFASALAZINE) TABLETS [Concomitant]
  7. INFREE (INDOMETACIN) CAPSULES [Concomitant]
  8. FOLIAMIN (FOLIC ACID) TABLETS [Concomitant]
  9. ALFAROL (ALFACALCIDOL) CAPSULES [Concomitant]
  10. ASPARA-CA (ASPARTATE CALCIUM) TABLETS [Concomitant]
  11. GASTROM (ECABET MONOSODIUM) GRANULES [Concomitant]

REACTIONS (8)
  - ARTHRALGIA [None]
  - BLOOD LACTATE DEHYDROGENASE INCREASED [None]
  - C-REACTIVE PROTEIN INCREASED [None]
  - CONDITION AGGRAVATED [None]
  - COUGH [None]
  - FATIGUE [None]
  - LIVER DISORDER [None]
  - MYCOBACTERIUM AVIUM COMPLEX INFECTION [None]
